FAERS Safety Report 8124218-X (Version None)
Quarter: 2012Q1

REPORT INFORMATION
  Report Type: 
  Country: None (occurrence: None)
  Receive Date: 20120209
  Receipt Date: 20120131
  Transmission Date: 20120608
  Serious: Yes (Other)
  Sender: FDA-Public Use
  Company Number: KR-BRISTOL-MYERS SQUIBB COMPANY-16387946

PATIENT

DRUGS (2)
  1. ABILIFY [Suspect]
     Indication: TIC
     Dosage: INITIATED THERAPY  AT A DOSE OF 2.5MG/DAY; INCREASED TO 5 MG/DAY AND LATER TO 5MG TWICE DAILY
     Route: 048
  2. PROPRANOLOL HYDROCHLORIDE [Concomitant]

REACTIONS (3)
  - STUPOR [None]
  - INSOMNIA [None]
  - ABULIA [None]
